FAERS Safety Report 11486562 (Version 1)
Quarter: 2015Q3

REPORT INFORMATION
  Report Type: Spontaneous
  Country: US (occurrence: US)
  Receive Date: 20150910
  Receipt Date: 20150910
  Transmission Date: 20151125
  Serious: No
  Sender: FDA-Public Use
  Company Number: US-PFIZER INC-2015287765

PATIENT
  Age: 80 Year
  Sex: Female
  Weight: 93 kg

DRUGS (3)
  1. NEURONTIN [Suspect]
     Active Substance: GABAPENTIN
     Indication: HYPOAESTHESIA
  2. NEURONTIN [Suspect]
     Active Substance: GABAPENTIN
     Indication: PARAESTHESIA
  3. NEURONTIN [Suspect]
     Active Substance: GABAPENTIN
     Indication: BURNING SENSATION
     Dosage: 300 MG, 1X/DAY

REACTIONS (4)
  - Sleep disorder [Unknown]
  - Feeling abnormal [Unknown]
  - Confusional state [Unknown]
  - Drug ineffective for unapproved indication [Unknown]
